FAERS Safety Report 24558245 (Version 1)
Quarter: 2024Q4

REPORT INFORMATION
  Report Type: Report from Study
  Country: CA (occurrence: CA)
  Receive Date: 20241028
  Receipt Date: 20241028
  Transmission Date: 20250114
  Serious: Yes (Other)
  Sender: ABBVIE
  Company Number: CA-ABBVIE-5978506

PATIENT
  Age: 69 Year
  Sex: Male

DRUGS (2)
  1. RINVOQ [Suspect]
     Active Substance: UPADACITINIB
     Indication: Rheumatoid arthritis
     Dosage: FORM STRENGTH: 15 MILLIGRAM
     Route: 048
     Dates: start: 20230906
  2. METHOTREXATE [Suspect]
     Active Substance: METHOTREXATE
     Indication: Product used for unknown indication
     Dosage: TAKE 8 PILLS EVERY WEDNESDAY.??HE MENTIONED THEY WERE COMPLAINING SINCE LAST FIVE YEARS TO PHYSIC...
     Route: 065
     Dates: end: 2024

REACTIONS (6)
  - Bursa removal [Unknown]
  - Puncture site reaction [Unknown]
  - Wound [Unknown]
  - Burning sensation [Recovered/Resolved]
  - Wound complication [Unknown]
  - Wound haemorrhage [Unknown]

NARRATIVE: CASE EVENT DATE: 20240601
